APPROVED DRUG PRODUCT: AZACTAM
Active Ingredient: AZTREONAM
Strength: 1GM/VIAL
Dosage Form/Route: INJECTABLE;INJECTION
Application: N050580 | Product #002 | TE Code: AP
Applicant: BRISTOL MYERS SQUIBB
Approved: Dec 31, 1986 | RLD: Yes | RS: Yes | Type: RX